FAERS Safety Report 4758950-2 (Version None)
Quarter: 2005Q3

REPORT INFORMATION
  Report Type: 
  Country: None (occurrence: None)
  Receive Date: 20050826
  Receipt Date: 20050813
  Transmission Date: 20060218
  Serious: Yes (Other)
  Sender: FDA-Public Use
  Company Number: 2005099177

PATIENT
  Sex: Female
  Weight: 67.1324 kg

DRUGS (9)
  1. NEURONTIN [Suspect]
     Indication: VERTEBRAL INJURY
     Dosage: 1250 MG (1 D), ORAL
     Route: 048
  2. KLONOPIN [Suspect]
     Indication: VERTEBRAL INJURY
     Dosage: ORAL
     Route: 048
  3. DITROPAN [Concomitant]
  4. SENOKOT [Concomitant]
  5. ZOCOR [Concomitant]
  6. BANADRYL [Concomitant]
  7. ACETYLSALICYLIC ACID SRT [Concomitant]
  8. MULTIVITAMINS WITH MINERALS (MULTIVITAMINS WITH MINERALS) [Concomitant]
  9. VITAMIN C (VITAMIN C) [Concomitant]

REACTIONS (8)
  - DRUG DEPENDENCE [None]
  - DRUG WITHDRAWAL SYNDROME [None]
  - FEELING ABNORMAL [None]
  - HYPERSOMNIA [None]
  - LETHARGY [None]
  - TOOTH DISORDER [None]
  - TOOTH LOSS [None]
  - UNEVALUABLE EVENT [None]
